FAERS Safety Report 4633153-0 (Version None)
Quarter: 2005Q2

REPORT INFORMATION
  Report Type: 
  Country: None (occurrence: None)
  Receive Date: 20050412
  Receipt Date: 20041210
  Transmission Date: 20051028
  Serious: Yes (Other)
  Sender: FDA-Public Use
  Company Number: PHEH2004US13276

PATIENT
  Age: 56 Year
  Sex: Female

DRUGS (5)
  1. ZELNORM [Suspect]
     Indication: IRRITABLE BOWEL SYNDROME
     Dosage: UNK, ONCE/SINGLE
     Dates: start: 20041208, end: 20041208
  2. PHENYTOIN SODIUM [Concomitant]
     Indication: CONVULSION
     Dosage: 400 MG, QD
     Dates: start: 19870101
  3. PHENOBARBITAL [Concomitant]
     Dosage: 100 MG, QD
  4. RISPERDAL [Concomitant]
     Dosage: 5 MG, QD
  5. SERZONE [Concomitant]
     Indication: DEPRESSION
     Dosage: 300 MG, QD

REACTIONS (1)
  - CONVULSION [None]
